FAERS Safety Report 7398864-5 (Version None)
Quarter: 2011Q2

REPORT INFORMATION
  Report Type: 
  Country: None (occurrence: None)
  Receive Date: 20110404
  Receipt Date: 20110404
  Transmission Date: 20111010
  Serious: Yes (Other)
  Sender: FDA-Public Use
  Company Number: None

PATIENT
  Age: 60 Year
  Sex: Female
  Weight: 117 kg

DRUGS (1)
  1. PRIVIGEN [Suspect]
     Indication: THROMBOCYTOPENIC PURPURA
     Dosage: 120 G TOTAL-40 G FROM LOT ONCE IV DRIP SINGLE DOSE ONLY
     Route: 041
     Dates: start: 20110328, end: 20110328

REACTIONS (2)
  - THERAPEUTIC RESPONSE UNEXPECTED [None]
  - ANTIBODY TEST POSITIVE [None]
